FAERS Safety Report 17065697 (Version 1)
Quarter: 2019Q4

REPORT INFORMATION
  Report Type: Spontaneous
  Country: DE (occurrence: DE)
  Receive Date: 20191122
  Receipt Date: 20191122
  Transmission Date: 20200122
  Serious: Yes (Other)
  Sender: FDA-Public Use
  Company Number: DE-ASTRAZENECA-2019SF62249

PATIENT
  Sex: Female

DRUGS (1)
  1. OMEPRAZOL [Suspect]
     Active Substance: OMEPRAZOLE
     Indication: OESOPHAGITIS
     Route: 048

REACTIONS (13)
  - Dementia Alzheimer^s type [Unknown]
  - Breath odour [Unknown]
  - Apathy [Unknown]
  - Hyperhidrosis [Unknown]
  - Hypersensitivity [Unknown]
  - Dysgeusia [Unknown]
  - Fatigue [Unknown]
  - Memory impairment [Unknown]
  - Malaise [Unknown]
  - Disturbance in attention [Unknown]
  - Arthralgia [Unknown]
  - Dementia [Unknown]
  - Dizziness [Unknown]
